FAERS Safety Report 5556915-4 (Version None)
Quarter: 2007Q4

REPORT INFORMATION
  Report Type: 
  Country: None (occurrence: None)
  Receive Date: 20071214
  Receipt Date: 20071203
  Transmission Date: 20080405
  Serious: Yes (Other)
  Sender: FDA-Public Use
  Company Number: PHBS2007ES20327

PATIENT
  Age: 26 Year
  Sex: Female

DRUGS (6)
  1. CYCLOSPORINE [Suspect]
     Indication: STEM CELL TRANSPLANT
     Dosage: 90 MG, Q12H
     Route: 042
     Dates: start: 20050501
  2. CYCLOSPORINE [Suspect]
     Dosage: 100 MG/DAY
     Route: 065
  3. CYCLOSPORINE [Suspect]
     Dosage: 75 MG/DAY
     Route: 065
  4. BUSULFAN [Concomitant]
  5. CYCLOPHOSPHAMIDE [Concomitant]
  6. ANTITHYMOCYTE IMMUNOGLOBULIN (RABBIT) [Concomitant]

REACTIONS (6)
  - EOSINOPHIL COUNT INCREASED [None]
  - EOSINOPHILIC PUSTULAR FOLLICULITIS [None]
  - ERYTHEMA [None]
  - PRURITUS [None]
  - RASH PAPULAR [None]
  - WHITE BLOOD CELL COUNT DECREASED [None]
